FAERS Safety Report 8838554 (Version 1)
Quarter: 2012Q4

REPORT INFORMATION
  Report Type: 
  Country: US (occurrence: US)
  Receive Date: 20121012
  Receipt Date: 20121012
  Transmission Date: 20130627
  Serious: Yes (Disabling, Other)
  Sender: FDA-Public Use
  Company Number: US-ELI_LILLY_AND_COMPANY-US201210001038

PATIENT
  Age: 73 Year
  Sex: Male

DRUGS (3)
  1. HUMULIN 30% REGULAR, 70% NPH [Suspect]
     Indication: DIABETES MELLITUS
     Dosage: 60 u, each morning
  2. HUMULIN 30% REGULAR, 70% NPH [Suspect]
     Dosage: 30 u, each evening
  3. ACTOS                                   /USA/ [Concomitant]
     Dosage: UNK
     Dates: end: 20120901

REACTIONS (6)
  - Hypoglycaemic unconsciousness [Unknown]
  - Osteoarthritis [Not Recovered/Not Resolved]
  - Back disorder [Not Recovered/Not Resolved]
  - Blood glucose fluctuation [Recovered/Resolved]
  - Blood glucose increased [Recovered/Resolved]
  - Somnolence [Unknown]
